FAERS Safety Report 15645611 (Version 2)
Quarter: 2018Q4

REPORT INFORMATION
  Report Type: Spontaneous
  Country: None (occurrence: US)
  Receive Date: 20181121
  Receipt Date: 20181128
  Transmission Date: 20190205
  Serious: No
  Sender: FDA-Public Use
  Company Number: US-FRESENIUS MEDICAL CARE RENAL THERAPIES GROUP-FMC-1811-001997

PATIENT
  Sex: Male
  Weight: 73 kg

DRUGS (1)
  1. DELFLEX [Suspect]
     Active Substance: CALCIUM CHLORIDE\DEXTROSE\MAGNESIUM CHLORIDE\SODIUM CHLORIDE\SODIUM LACTATE
     Indication: END STAGE RENAL DISEASE
     Dosage: FIVE EXCHANGES OF 2500 ML, LAST FILL OF 2000 ML AND A DAY TIME OF EXCHANGE 2000 ML FOR A TOTAL TREAT

REACTIONS (1)
  - Bronchitis [Recovered/Resolved]
